FAERS Safety Report 10023275 (Version 1)
Quarter: 2014Q1

REPORT INFORMATION
  Report Type: Spontaneous
  Country: US (occurrence: US)
  Receive Date: 20140320
  Receipt Date: 20140320
  Transmission Date: 20141002
  Serious: No
  Sender: FDA-Public Use
  Company Number: US-BIOGENIDEC-2007BI011991

PATIENT
  Age: 32 Year
  Sex: Female

DRUGS (3)
  1. AVONEX [Suspect]
     Indication: MULTIPLE SCLEROSIS
     Route: 030
  2. AVONEX [Suspect]
     Indication: MULTIPLE SCLEROSIS
     Route: 030
     Dates: start: 20070501
  3. AVONEX [Suspect]
     Indication: MULTIPLE SCLEROSIS
     Route: 030
     Dates: start: 20070604

REACTIONS (6)
  - Nasopharyngitis [Recovered/Resolved]
  - Seasonal allergy [Not Recovered/Not Resolved]
  - Feeling cold [Recovered/Resolved]
  - Influenza like illness [Not Recovered/Not Resolved]
  - Feeling hot [Recovered/Resolved]
  - Headache [Recovered/Resolved]
